FAERS Safety Report 16134838 (Version 3)
Quarter: 2025Q3

REPORT INFORMATION
  Report Type: Other
  Country: GB (occurrence: EU)
  Receive Date: 20190329
  Receipt Date: 20250909
  Transmission Date: 20251020
  Serious: Yes (Other)
  Sender: Alora Pharma
  Company Number: EU-OSMOTICA_PHARMACEUTICAL_US_LLC-POI0573201900123

PATIENT
  Age: 47 Year
  Sex: Female
  Weight: 66 kg

DRUGS (4)
  1. ESTRADIOL [Suspect]
     Active Substance: ESTRADIOL
     Indication: Product used for unknown indication
     Dosage: 1 DOSAGE FORM, 1 IN 1 D
     Route: 003
     Dates: start: 20181020, end: 2018
  2. CYPROTERONE ACETATE [Suspect]
     Active Substance: CYPROTERONE ACETATE
     Indication: Hirsutism
     Dosage: 20 DOSAGE FORM PER MONTH, STRENGTH: 50 MG (1000 MG,1 M)
     Route: 048
     Dates: start: 19930315, end: 20181020
  3. ESTRIOL [Suspect]
     Active Substance: ESTRIOL
     Indication: Product used for unknown indication
     Dosage: 1 DOSAGE FORM, 1 D
     Route: 048
     Dates: end: 20181020
  4. ESTRADIOL [Suspect]
     Active Substance: ESTRADIOL
     Indication: Product used for unknown indication
     Dosage: 1 DOSAGE FORM, 1X/DAY
     Route: 048
     Dates: start: 20181020, end: 2018

REACTIONS (1)
  - Meningioma [None]

NARRATIVE: CASE EVENT DATE: 20190130
